FAERS Safety Report 19184501 (Version 1)
Quarter: 2021Q2

REPORT INFORMATION
  Report Type: Spontaneous
  Country: US (occurrence: US)
  Receive Date: 20210424
  Receipt Date: 20210424
  Transmission Date: 20210717
  Serious: Yes (Hospitalization)
  Sender: FDA-Public Use
  Company Number: None

PATIENT
  Age: 65 Year
  Sex: Female
  Weight: 134 kg

DRUGS (12)
  1. CISPLATIN. [Suspect]
     Active Substance: CISPLATIN
     Dates: end: 20210324
  2. ALBUTEROL. [Concomitant]
     Active Substance: ALBUTEROL
  3. FOLIC ACID. [Concomitant]
     Active Substance: FOLIC ACID
  4. HYDROCHLOROTHIAZIDE. [Concomitant]
     Active Substance: HYDROCHLOROTHIAZIDE
  5. BENAZEPRIL [Concomitant]
     Active Substance: BENAZEPRIL HYDROCHLORIDE
  6. AZELASTINE. [Concomitant]
     Active Substance: AZELASTINE HYDROCHLORIDE
  7. ALIMTA [Suspect]
     Active Substance: PEMETREXED DISODIUM
     Dates: end: 20210324
  8. PROMETHAZINE [Concomitant]
     Active Substance: PROMETHAZINE HYDROCHLORIDE
  9. NITROFURANTOIN. [Concomitant]
     Active Substance: NITROFURANTOIN
  10. AZITHROMYCIN ANHYDROUS. [Concomitant]
     Active Substance: AZITHROMYCIN ANHYDROUS
  11. LOPERAMIDE [Concomitant]
     Active Substance: LOPERAMIDE
  12. INDANSETRON [Concomitant]

REACTIONS (10)
  - Chest pain [None]
  - Hyperthyroidism [None]
  - Nausea [None]
  - Atrial fibrillation [None]
  - Urinary tract infection [None]
  - Dyspnoea [None]
  - Pulmonary embolism [None]
  - Abdominal pain [None]
  - Hypotension [None]
  - Sinus tachycardia [None]

NARRATIVE: CASE EVENT DATE: 20210412
